FAERS Safety Report 5786490-0 (Version None)
Quarter: 2008Q2

REPORT INFORMATION
  Report Type: 
  Country: None (occurrence: None)
  Receive Date: 20080624
  Receipt Date: 20070710
  Transmission Date: 20081010
  Serious: No
  Sender: FDA-Public Use
  Company Number: US-ASTRAZENECA-2007UW16259

PATIENT
  Age: 5 Year
  Sex: Female

DRUGS (3)
  1. PULMICORT RESPULES [Suspect]
     Indication: ASTHMA
     Route: 055
     Dates: start: 20060101
  2. ZYRTEC [Concomitant]
  3. RHINOCORT [Concomitant]
     Route: 045

REACTIONS (1)
  - BREATH ODOUR [None]
